FAERS Safety Report 24862823 (Version 2)
Quarter: 2025Q2

REPORT INFORMATION
  Report Type: Report from Study
  Country: IT (occurrence: IT)
  Receive Date: 20250120
  Receipt Date: 20250528
  Transmission Date: 20250717
  Serious: Yes (Disabling)
  Sender: ROCHE
  Company Number: IT-ROCHE-10000180534

PATIENT
  Age: 56 Year
  Sex: Female
  Weight: 67 kg

DRUGS (1)
  1. PHESGO [Suspect]
     Active Substance: HYALURONIDASE-ZZXF\PERTUZUMAB\TRASTUZUMAB
     Indication: HER2 positive breast cancer
     Route: 058
     Dates: start: 2023, end: 20240806

REACTIONS (2)
  - Ejection fraction decreased [Recovered/Resolved with Sequelae]
  - Ventricular hypokinesia [Recovered/Resolved with Sequelae]

NARRATIVE: CASE EVENT DATE: 20240813
